FAERS Safety Report 6532164-8 (Version None)
Quarter: 2010Q1

REPORT INFORMATION
  Report Type: 
  Country: None (occurrence: None)
  Receive Date: 20100108
  Receipt Date: 20100107
  Transmission Date: 20100710
  Serious: Yes (Hospitalization, Disabling, Other)
  Sender: FDA-Public Use
  Company Number: A0838323A

PATIENT
  Age: 58 Year
  Sex: Male

DRUGS (5)
  1. AVANDIA [Suspect]
     Dosage: 8MG PER DAY
     Route: 048
     Dates: start: 20060101, end: 20091101
  2. LISINOPRIL [Concomitant]
  3. SIMVASTATIN [Concomitant]
  4. GLIPIZIDE [Concomitant]
  5. GLUCOPHAGE [Concomitant]

REACTIONS (3)
  - ASCITES [None]
  - OEDEMA [None]
  - PERICARDIAL EFFUSION [None]
